FAERS Safety Report 6619659-3 (Version None)
Quarter: 2010Q1

REPORT INFORMATION
  Report Type: 
  Country: None (occurrence: None)
  Receive Date: 20100309
  Receipt Date: 20100223
  Transmission Date: 20100710
  Serious: Yes (Hospitalization)
  Sender: FDA-Public Use
  Company Number: US-KINGPHARMUSA00001-K201000201

PATIENT
  Age: 39 Year
  Sex: Female

DRUGS (1)
  1. EMBEDA [Suspect]
     Indication: PAIN
     Dosage: 30 MG, SINGLE
     Route: 048

REACTIONS (10)
  - GASTROINTESTINAL SOUNDS ABNORMAL [None]
  - HEART RATE INCREASED [None]
  - INTENTIONAL DRUG MISUSE [None]
  - MYDRIASIS [None]
  - NAUSEA [None]
  - PAIN [None]
  - PILOERECTION [None]
  - RESPIRATORY RATE INCREASED [None]
  - VOMITING [None]
  - WITHDRAWAL SYNDROME [None]
